FAERS Safety Report 9478945 (Version 1)
Quarter: 2013Q3

REPORT INFORMATION
  Report Type: Spontaneous
  Country: US (occurrence: US)
  Receive Date: 20130827
  Receipt Date: 20130827
  Transmission Date: 20140515
  Serious: Yes (Other)
  Sender: FDA-Public Use
  Company Number: US-ROXANE LABORATORIES, INC.-2013-RO-01414RO

PATIENT
  Age: 42 Year
  Sex: Female

DRUGS (4)
  1. OXYCODONE [Suspect]
     Indication: CANCER PAIN
     Dosage: 200 MG
  2. METHADONE [Suspect]
     Indication: CANCER PAIN
     Dosage: 20 MG
     Route: 048
  3. PREGABALIN [Concomitant]
     Indication: PAIN
     Dosage: 300 MG
  4. HYDROMORPHONE [Concomitant]
     Indication: PAIN
     Dosage: 48 MG

REACTIONS (2)
  - Toxicity to various agents [Recovered/Resolved]
  - Urinary tract infection [Unknown]
